FAERS Safety Report 12691871 (Version 1)
Quarter: 2016Q3

REPORT INFORMATION
  Report Type: Spontaneous
  Country: TH (occurrence: TH)
  Receive Date: 20160827
  Receipt Date: 20160827
  Transmission Date: 20161109
  Serious: Yes (Hospitalization)
  Sender: FDA-Public Use
  Company Number: TH-ACCORD-038114

PATIENT
  Age: 50 Year
  Sex: Male

DRUGS (6)
  1. TACROLIMUS. [Suspect]
     Active Substance: TACROLIMUS
     Indication: PROPHYLAXIS AGAINST TRANSPLANT REJECTION
     Dosage: ON ADMISSION (1 MG) 4 TABLETS TWICE DAILY}AN INCREASED DOSE}GRADUALLY TAPERING DOSE
  2. MIXTARD HUMAN 70/30 [Concomitant]
     Active Substance: INSULIN HUMAN
     Indication: TYPE 2 DIABETES MELLITUS
  3. PREDNISOLONE. [Suspect]
     Active Substance: PREDNISOLONE
     Indication: TRANSPLANT REJECTION
     Dosage: AN INCREASED DOSE
  4. AMLODIPINE [Concomitant]
     Active Substance: AMLODIPINE BESYLATE
     Indication: HYPERTENSION
  5. MYCOPHENOLIC ACID. [Suspect]
     Active Substance: MYCOPHENOLIC ACID
     Indication: PROPHYLAXIS AGAINST TRANSPLANT REJECTION
     Dosage: ON ADMISSION (180 MG) 2 TABLETS TWICE DAILY }AN INCREASED DOSE}GRADUALLY TAPERING DOSE
  6. METHYLPREDNISOLONE. [Suspect]
     Active Substance: METHYLPREDNISOLONE
     Indication: TRANSPLANT REJECTION
     Dosage: 3 DAYS PULSE DOSE

REACTIONS (5)
  - Palmar erythema [Unknown]
  - Pharyngitis bacterial [Recovering/Resolving]
  - Thyroid gland abscess [Recovering/Resolving]
  - Pneumonia aspiration [Recovering/Resolving]
  - Nocardiosis [Recovering/Resolving]
